FAERS Safety Report 9980754 (Version 3)
Quarter: 2014Q2

REPORT INFORMATION
  Report Type: Spontaneous
  Country: US (occurrence: US)
  Receive Date: 20140307
  Receipt Date: 20140512
  Transmission Date: 20141212
  Serious: Yes (Death, Other)
  Sender: FDA-Public Use
  Company Number: US-009507513-1403USA002970

PATIENT
  Sex: Male

DRUGS (2)
  1. ISENTRESS [Suspect]
     Dosage: 400 MG, 2/1 DAY
     Route: 048
  2. SUSTIVA [Suspect]
     Dosage: 600 MG, UNK
     Route: 048

REACTIONS (1)
  - Cerebrovascular accident [Fatal]
